FAERS Safety Report 5252933-4 (Version None)
Quarter: 2007Q1

REPORT INFORMATION
  Report Type: 
  Country: None (occurrence: None)
  Receive Date: 20070227
  Receipt Date: 20070213
  Transmission Date: 20070707
  Serious: Yes (Other)
  Sender: FDA-Public Use
  Company Number: CHNY2007CA00913

PATIENT
  Age: 21 Year
  Sex: Male

DRUGS (1)
  1. BUCKLEY'S COUGH + COLD (NCH) (PSEUDOEPHEDRINE HYDROCHLORIDE, DEXTROMET [Suspect]
     Indication: COUGH
     Dosage: 1 MOUTHFULL, EVERY 2 TO 3 HOURS, ORAL
     Route: 048
     Dates: start: 20070213, end: 20070213

REACTIONS (2)
  - EUPHORIC MOOD [None]
  - WRONG TECHNIQUE IN DRUG USAGE PROCESS [None]
